FAERS Safety Report 6386174-4 (Version None)
Quarter: 2009Q4

REPORT INFORMATION
  Report Type: 
  Country: None (occurrence: None)
  Receive Date: 20091002
  Receipt Date: 20081124
  Transmission Date: 20100525
  Serious: Yes (Other)
  Sender: FDA-Public Use
  Company Number: US-ASTRAZENECA-2008UW26252

PATIENT
  Age: 62 Year
  Sex: Female
  Weight: 49.9 kg

DRUGS (5)
  1. ARIMIDEX [Suspect]
     Route: 048
     Dates: start: 20061101
  2. GADAPIN [Concomitant]
  3. CITALOPRAM [Concomitant]
  4. DUONEB [Concomitant]
  5. FLOMAX [Concomitant]

REACTIONS (1)
  - CATARACT [None]
